FAERS Safety Report 11506922 (Version 1)
Quarter: 2015Q3

REPORT INFORMATION
  Report Type: Spontaneous
  Country: FI (occurrence: FI)
  Receive Date: 20150915
  Receipt Date: 20150915
  Transmission Date: 20151125
  Serious: Yes (Life-Threatening)
  Sender: FDA-Public Use
  Company Number: FI-AMEDRA PHARMACEUTICALS LLC-2015AMD00190

PATIENT

DRUGS (3)
  1. SEVOFLURANE. [Concomitant]
     Active Substance: SEVOFLURANE
  2. BUPIVACAINE [Suspect]
     Active Substance: BUPIVACAINE
     Indication: NERVE BLOCK
     Route: 065
  3. EPINEPHRINE. [Suspect]
     Active Substance: EPINEPHRINE
     Indication: NERVE BLOCK
     Dosage: UNK

REACTIONS (1)
  - Circulatory collapse [Recovered/Resolved]
